FAERS Safety Report 6475782-8 (Version None)
Quarter: 2009Q4

REPORT INFORMATION
  Report Type: 
  Country: None (occurrence: None)
  Receive Date: 20091204
  Receipt Date: 20091125
  Transmission Date: 20100525
  Serious: Yes (Other)
  Sender: FDA-Public Use
  Company Number: US-ABBOTT-09P-163-0579502-00

PATIENT
  Sex: Female
  Weight: 61.29 kg

DRUGS (7)
  1. DEPAKOTE [Suspect]
     Indication: CONVULSION
     Dosage: 375 AM, 575 PM
     Dates: start: 19820101
  2. DEPAKOTE [Suspect]
     Dosage: PER DAY
     Route: 048
     Dates: end: 20090101
  3. DEPAKOTE [Suspect]
     Route: 048
     Dates: start: 20090101
  4. LAMICTAL [Suspect]
     Indication: CONVULSION
     Dates: start: 20090401
  5. SYNTHROID [Concomitant]
     Indication: DRUG USE FOR UNKNOWN INDICATION
  6. CRESTOR [Concomitant]
     Indication: DRUG USE FOR UNKNOWN INDICATION
  7. UNKNOWN DIABETIC MEDICATION [Concomitant]
     Indication: DRUG USE FOR UNKNOWN INDICATION

REACTIONS (10)
  - ABASIA [None]
  - ALOPECIA [None]
  - APHASIA [None]
  - CEREBRAL ATROPHY [None]
  - FALL [None]
  - HYPOAESTHESIA [None]
  - MUSCULAR WEAKNESS [None]
  - PAIN IN EXTREMITY [None]
  - TREMOR [None]
  - WEIGHT INCREASED [None]
